FAERS Safety Report 6173515-6 (Version None)
Quarter: 2009Q2

REPORT INFORMATION
  Report Type: 
  Country: None (occurrence: None)
  Receive Date: 20090430
  Receipt Date: 20090427
  Transmission Date: 20091009
  Serious: Yes (Other)
  Sender: FDA-Public Use
  Company Number: A0781323A

PATIENT
  Age: 29 Year
  Sex: Female

DRUGS (3)
  1. LAMIVUDINE [Suspect]
     Indication: HIV INFECTION
     Route: 048
  2. ADEFOVIR DIPIVOXIL KIT [Suspect]
     Indication: DRUG USE FOR UNKNOWN INDICATION
  3. SEBIVO [Concomitant]
     Indication: HIV INFECTION
     Dates: start: 20080820

REACTIONS (2)
  - ABORTION INDUCED [None]
  - DRUG EXPOSURE DURING PREGNANCY [None]
